FAERS Safety Report 5861021-5 (Version None)
Quarter: 2008Q3

REPORT INFORMATION
  Report Type: 
  Country: None (occurrence: None)
  Receive Date: 20080827
  Receipt Date: 20080121
  Transmission Date: 20090109
  Serious: No
  Sender: FDA-Public Use
  Company Number: US-ABBOTT-08P-163-0435986-00

PATIENT
  Sex: Female

DRUGS (2)
  1. COATED PDS [Suspect]
     Indication: DRUG USE FOR UNKNOWN INDICATION
  2. EZETIMIBE [Suspect]
     Indication: DRUG USE FOR UNKNOWN INDICATION

REACTIONS (1)
  - HEADACHE [None]
